FAERS Safety Report 8920790 (Version 2)
Quarter: 2012Q4

REPORT INFORMATION
  Report Type: 
  Country: HK (occurrence: HK)
  Receive Date: 20121122
  Receipt Date: 20121214
  Transmission Date: 20130627
  Serious: Yes (Death, Other)
  Sender: FDA-Public Use
  Company Number: HK-GENZYME-CAMP-1002572

PATIENT
  Age: 10 Year
  Sex: Male
  Weight: 43.5 kg

DRUGS (9)
  1. CAMPATH [Suspect]
     Indication: PROPHYLAXIS AGAINST GRAFT VERSUS HOST DISEASE
     Dosage: 8.5 mg, qd
     Route: 042
     Dates: start: 20100705, end: 20100709
  2. FLUDARA [Suspect]
     Indication: BONE MARROW CONDITIONING REGIMEN
     Dosage: 39 mg, qd
     Route: 042
     Dates: start: 20100706, end: 20100709
  3. CYCLOPHOSPHAMIDE [Suspect]
     Indication: BONE MARROW CONDITIONING REGIMEN
     Dosage: 390 mg, qd
     Route: 042
     Dates: start: 20100706, end: 20100709
  4. CYCLOSPORIN A [Suspect]
     Indication: PROPHYLAXIS AGAINST GRAFT VERSUS HOST DISEASE
     Dosage: 21 mg, bid
     Route: 042
     Dates: start: 20100706, end: 20100708
  5. CYCLOSPORIN A [Suspect]
     Dosage: 43 mg, bid
     Route: 042
     Dates: start: 20100711, end: 20100711
  6. CYCLOSPORIN A [Suspect]
     Dosage: Adjusted according to the blood levels
     Route: 042
  7. FLUCONAZOLE [Concomitant]
     Indication: ANTIFUNGAL PROPHYLAXIS
     Dosage: UNK
     Route: 065
  8. ACYCLOVIR [Concomitant]
     Indication: ANTIFUNGAL PROPHYLAXIS
     Dosage: UNK
     Route: 065
  9. CO-TRIMOXAZOLE [Concomitant]
     Indication: ANTIFUNGAL PROPHYLAXIS
     Dosage: UNK
     Route: 065

REACTIONS (4)
  - Transplant failure [Fatal]
  - Pneumonia klebsiella [Fatal]
  - Transplant failure [Unknown]
  - Viral infection [Recovered/Resolved]
